FAERS Safety Report 5301824-9 (Version None)
Quarter: 2007Q2

REPORT INFORMATION
  Report Type: 
  Country: None (occurrence: None)
  Receive Date: 20070416
  Receipt Date: 20070416
  Transmission Date: 20071010
  Serious: Yes (Other)
  Sender: FDA-Public Use
  Company Number: None

PATIENT
  Age: 1 Day
  Sex: Female
  Weight: 0.839 kg

DRUGS (2)
  1. INFASURF 3 ML FOREST PHARMACEUTICALS [Suspect]
     Indication: PREMATURE BABY
     Dosage: 2.3 ML ONCE ENDOTRACHEA
     Route: 007
     Dates: start: 20070324, end: 20070324
  2. INFASURF 3 ML FOREST PHARMACEUTICALS [Suspect]
     Indication: RESPIRATORY DISTRESS
     Dosage: 2.3 ML ONCE ENDOTRACHEA
     Route: 007
     Dates: start: 20070324, end: 20070324

REACTIONS (1)
  - CYANOSIS [None]
